FAERS Safety Report 20066619 (Version 1)
Quarter: 2021Q4

REPORT INFORMATION
  Report Type: Spontaneous
  Country: JP (occurrence: JP)
  Receive Date: 20211115
  Receipt Date: 20211115
  Transmission Date: 20220303
  Serious: Yes (Other)
  Sender: FDA-Public Use
  Company Number: JP-ALKEM LABORATORIES LIMITED-JP-ALKEM-2021-05372

PATIENT
  Age: 74 Year
  Sex: Female

DRUGS (2)
  1. PREGABALIN [Suspect]
     Active Substance: PREGABALIN
     Indication: Post-traumatic neuralgia
     Dosage: 150 MILLIGRAM, QD
     Route: 065
  2. BROTIZOLAM [Concomitant]
     Active Substance: BROTIZOLAM
     Indication: Insomnia
     Dosage: 0.25 MILLIGRAM, QD
     Route: 065

REACTIONS (13)
  - Suicidal ideation [Recovered/Resolved]
  - Drug withdrawal syndrome [Recovered/Resolved]
  - Headache [Recovered/Resolved]
  - Tremor [Recovered/Resolved]
  - Insomnia [Recovered/Resolved]
  - Decreased appetite [Recovered/Resolved]
  - Dyspnoea [Recovered/Resolved]
  - Lacrimation increased [Recovered/Resolved]
  - Epigastric discomfort [Recovered/Resolved]
  - Depression [Recovered/Resolved]
  - Restlessness [Recovered/Resolved]
  - Cold sweat [Recovered/Resolved]
  - Anxiety [Recovered/Resolved]
